FAERS Safety Report 5353107-9 (Version None)
Quarter: 2007Q2

REPORT INFORMATION
  Report Type: 
  Country: None (occurrence: None)
  Receive Date: 20070607
  Receipt Date: 20070525
  Transmission Date: 20071010
  Serious: Yes (Death, Hospitalization)
  Sender: FDA-Public Use
  Company Number: 6033929

PATIENT
  Sex: Male

DRUGS (1)
  1. GLYBURIDE AND METFORMIN HCL [Suspect]
     Indication: DRUG USE FOR UNKNOWN INDICATION
     Route: 048

REACTIONS (3)
  - DUODENAL ULCER [None]
  - HEPATITIS FULMINANT [None]
  - RENAL FAILURE CHRONIC [None]
